FAERS Safety Report 5398517-9 (Version None)
Quarter: 2007Q3

REPORT INFORMATION
  Report Type: 
  Country: None (occurrence: None)
  Receive Date: 20070726
  Receipt Date: 20061107
  Transmission Date: 20080115
  Serious: No
  Sender: FDA-Public Use
  Company Number: US-AMGEN-KDL199661

PATIENT
  Sex: Male

DRUGS (6)
  1. PROCRIT [Suspect]
     Indication: MYELODYSPLASTIC SYNDROME
     Route: 058
  2. ASPIRIN [Concomitant]
  3. LASIX [Concomitant]
  4. METOPROLOL SUCCINATE [Concomitant]
  5. LYRICA [Concomitant]
  6. VITAMIN B6 [Concomitant]

REACTIONS (1)
  - HIP FRACTURE [None]
